FAERS Safety Report 5044111-9 (Version None)
Quarter: 2006Q3

REPORT INFORMATION
  Report Type: 
  Country: None (occurrence: None)
  Receive Date: 20060706
  Receipt Date: 20060602
  Transmission Date: 20061208
  Serious: Yes (Hospitalization)
  Sender: FDA-Public Use
  Company Number: FR-ROCHE-450420

PATIENT
  Age: 81 Year
  Sex: Female
  Weight: 78 kg

DRUGS (6)
  1. LAROXYL [Suspect]
     Route: 048
     Dates: end: 20060326
  2. LAROXYL [Suspect]
     Route: 048
     Dates: start: 20060405, end: 20060417
  3. COTAREG [Interacting]
     Indication: ESSENTIAL HYPERTENSION
     Route: 048
     Dates: end: 20060326
  4. RIVOTRIL [Concomitant]
     Route: 048
  5. MOGADON [Concomitant]
     Route: 048
  6. LEVOTHYROX [Concomitant]
     Route: 048

REACTIONS (4)
  - BALANCE DISORDER [None]
  - DRUG INTERACTION [None]
  - FALL [None]
  - ORTHOSTATIC HYPOTENSION [None]
